FAERS Safety Report 16006021 (Version 1)
Quarter: 2019Q1

REPORT INFORMATION
  Report Type: Report from Study
  Country: None (occurrence: AR)
  Receive Date: 20190226
  Receipt Date: 20190226
  Transmission Date: 20190418
  Serious: Yes (Other)
  Sender: FDA-Public Use
  Company Number: AR-ABBVIE-19K-007-2626887-00

PATIENT
  Age: 45 Year
  Sex: Female

DRUGS (1)
  1. HUMIRA [Suspect]
     Active Substance: ADALIMUMAB
     Indication: PSORIASIS
     Route: 058
     Dates: start: 20170323

REACTIONS (9)
  - Psoriatic arthropathy [Not Recovered/Not Resolved]
  - Pain [Unknown]
  - Gait inability [Unknown]
  - Arthritis [Unknown]
  - Psoriasis [Unknown]
  - Tuberculosis [Unknown]
  - Hepatic steatosis [Unknown]
  - Suicidal ideation [Unknown]
  - Mobility decreased [Unknown]

NARRATIVE: CASE EVENT DATE: 201812
